FAERS Safety Report 9473321 (Version 2)
Quarter: 2013Q3

REPORT INFORMATION
  Report Type: Spontaneous
  Country: US (occurrence: US)
  Receive Date: 20130823
  Receipt Date: 20130823
  Transmission Date: 20140515
  Serious: No
  Sender: FDA-Public Use
  Company Number: US-GALDERMA-US-GDP-12414289

PATIENT
  Sex: Female

DRUGS (2)
  1. METROGEL [Suspect]
  2. CETAPHIL [Suspect]
     Indication: ROSACEA
     Route: 061

REACTIONS (3)
  - Rosacea [Unknown]
  - Skin burning sensation [Unknown]
  - Pain of skin [Unknown]
